FAERS Safety Report 7726356-X (Version None)
Quarter: 2011Q3

REPORT INFORMATION
  Report Type: 
  Country: None (occurrence: None)
  Receive Date: 20110902
  Receipt Date: 20110829
  Transmission Date: 20111222
  Serious: Yes (Other)
  Sender: FDA-Public Use
  Company Number: JP-B.I. PHARMACEUTICALS,INC./RIDGEFIELD-2011-BP-20971NB

PATIENT
  Age: 77 Year
  Sex: Female

DRUGS (5)
  1. PRADAXA [Suspect]
     Indication: ATRIAL FIBRILLATION
     Dosage: 220 MG
     Route: 048
     Dates: start: 20110607
  2. EBRANTIL [Concomitant]
     Dosage: 15 MG
     Route: 048
  3. SEROQUEL [Concomitant]
     Dosage: 25 MG
     Route: 048
  4. FAMOTIDINE [Concomitant]
     Dosage: 20 MG
     Route: 048
  5. LANIRAPID [Concomitant]
     Dosage: 0.05 MG
     Route: 048

REACTIONS (1)
  - INTERNATIONAL NORMALISED RATIO INCREASED [None]
